FAERS Safety Report 12877980 (Version 1)
Quarter: 2016Q4

REPORT INFORMATION
  Report Type: Spontaneous
  Country: GB (occurrence: GB)
  Receive Date: 20161024
  Receipt Date: 20161024
  Transmission Date: 20170207
  Serious: Yes (Other)
  Sender: FDA-Public Use
  Company Number: GB-TEVA-705584ACC

PATIENT
  Age: 61 Year
  Sex: Male

DRUGS (10)
  1. FYBOGEL [Concomitant]
     Active Substance: PLANTAGO OVATA SEED
     Dosage: 3.5 GRAM DAILY; WITH PLENTY OF FLUID.
     Dates: start: 20151218
  2. SYMBICORT [Concomitant]
     Active Substance: BUDESONIDE\FORMOTEROL FUMARATE DIHYDRATE
     Indication: COUGH
     Dosage: 200/6. ONE PUFF TWICE DAILY. CAN DOUBLE DOSE IF NEEDED.
     Route: 055
     Dates: start: 20151218
  3. SERTRALINE [Concomitant]
     Active Substance: SERTRALINE HYDROCHLORIDE
     Indication: DEPRESSION
     Dosage: 50 MILLIGRAM DAILY;
     Dates: start: 20141016
  4. RAMIPRIL. [Concomitant]
     Active Substance: RAMIPRIL
     Indication: ESSENTIAL HYPERTENSION
     Dosage: 2.5 MILLIGRAM DAILY;
     Dates: start: 20141016
  5. MADOPAR CR [Concomitant]
     Active Substance: BENSERAZIDE HYDROCHLORIDE\LEVODOPA
     Indication: PARKINSON^S DISEASE
     Dosage: 2 DOSAGE FORMS DAILY; AT MIDNIGHT.
     Dates: start: 20151218
  6. MADOPAR [Concomitant]
     Active Substance: BENSERAZIDE HYDROCHLORIDE\LEVODOPA
     Indication: PARKINSON^S DISEASE
     Dosage: 2 DOSAGE FORMS DAILY; 50/12.5MG. AT 08:00.
     Dates: start: 20150602
  7. AMITRIPTYLINE [Concomitant]
     Active Substance: AMITRIPTYLINE
     Indication: INSOMNIA
     Dosage: ONE AT 7PM CAN INCREASE TO 2 IF NEEDED.
     Dates: start: 20160114
  8. ERYTHROMYCIN. [Suspect]
     Active Substance: ERYTHROMYCIN
     Indication: CELLULITIS
     Dosage: UNKNOWN.
     Route: 048
     Dates: start: 20160909
  9. COCODAMOL [Concomitant]
     Active Substance: ACETAMINOPHEN\CODEINE PHOSPHATE
     Indication: MUSCULOSKELETAL PAIN
     Dosage: 30/500MG.  1-2 EVERY 6 HOURS.
     Dates: start: 20141016
  10. DOMPERIDONE [Concomitant]
     Active Substance: DOMPERIDONE
     Indication: NAUSEA
     Dosage: EVERY 8 HOURS
     Dates: start: 20141016

REACTIONS (1)
  - Blister [Recovering/Resolving]

NARRATIVE: CASE EVENT DATE: 20160910
